FAERS Safety Report 5214746-9 (Version None)
Quarter: 2007Q1

REPORT INFORMATION
  Report Type: 
  Country: None (occurrence: None)
  Receive Date: 20070122
  Receipt Date: 20070118
  Transmission Date: 20070707
  Serious: Yes (Death, Other)
  Sender: FDA-Public Use
  Company Number: JP-SANOFI-SYNTHELABO-F01200600572

PATIENT
  Sex: Male
  Weight: 75 kg

DRUGS (3)
  1. LEUCOVORIN CALCIUM [Suspect]
     Dosage: 75 MG/BODY=42.9 MG/M2 INFUSION DAY 1 + 2
     Route: 042
     Dates: start: 20060111, end: 20060112
  2. FLUOROURACIL [Suspect]
     Dosage: 250 MG/BODY=142.9 MG/M2 IN BOLUS THEN 500 MG/BODY=285.7 MG/M2 AS CONTINUOUS INFUSION DAY 1 + 2
     Route: 042
     Dates: start: 20060111, end: 20060112
  3. OXALIPLATIN [Suspect]
     Indication: RECTAL CANCER
     Dosage: 60 MG/BODY=34.3 MG/M2 INFUSION DAY 1
     Route: 042
     Dates: start: 20060111, end: 20060111

REACTIONS (5)
  - BLOOD CREATININE INCREASED [None]
  - DYSPNOEA [None]
  - NAUSEA [None]
  - RENAL IMPAIRMENT [None]
  - VOMITING [None]
